FAERS Safety Report 5913084-6 (Version None)
Quarter: 2008Q4

REPORT INFORMATION
  Report Type: 
  Country: None (occurrence: None)
  Receive Date: 20081008
  Receipt Date: 20081008
  Transmission Date: 20090506
  Serious: Yes (Life-Threatening, Disabling, Other)
  Sender: FDA-Public Use
  Company Number: None

PATIENT
  Age: 54 Year
  Sex: Female
  Weight: 80.2867 kg

DRUGS (1)
  1. SEROQUEL [Suspect]
     Indication: INSOMNIA
     Dosage: 600 MG EACH NIGHT BEDTIME PO
     Route: 048
     Dates: start: 20070825, end: 20080109

REACTIONS (6)
  - DYSPEPSIA [None]
  - DYSPNOEA [None]
  - HIATUS HERNIA [None]
  - INCORRECT DOSE ADMINISTERED [None]
  - OBESITY [None]
  - TYPE 2 DIABETES MELLITUS [None]
